FAERS Safety Report 5921478-8 (Version None)
Quarter: 2008Q4

REPORT INFORMATION
  Report Type: 
  Country: None (occurrence: None)
  Receive Date: 20081016
  Receipt Date: 20081016
  Transmission Date: 20090506
  Serious: No
  Sender: FDA-Public Use
  Company Number: None

PATIENT
  Sex: Female
  Weight: 79.3795 kg

DRUGS (1)
  1. TRAMADOL HCL [Suspect]
     Indication: SPINAL FRACTURE
     Dosage: 2 TABLETS 4 TIMES/DAY  MOUTH
     Route: 048
     Dates: start: 20080906, end: 20080913

REACTIONS (7)
  - ABDOMINAL DISCOMFORT [None]
  - AMNESIA [None]
  - COGNITIVE DISORDER [None]
  - CONFUSIONAL STATE [None]
  - DRUG INEFFECTIVE [None]
  - HYPOPHAGIA [None]
  - VISUAL ACUITY REDUCED [None]
